FAERS Safety Report 5757799-1 (Version None)
Quarter: 2008Q2

REPORT INFORMATION
  Report Type: 
  Country: None (occurrence: None)
  Receive Date: 20080529
  Receipt Date: 20080513
  Transmission Date: 20081010
  Serious: Yes (Hospitalization)
  Sender: FDA-Public Use
  Company Number: DSA_31860_2008

PATIENT
  Sex: Male

DRUGS (8)
  1. TEMESTA /00273201/ (TEMESTA - LORAZEPAM) (1 MG, 2 MG) (NOT SPECIFIED) [Suspect]
     Indication: DRUG USE FOR UNKNOWN INDICATION
     Dosage: (1 MG QD), (2 MG QD)
     Dates: start: 20071017, end: 20071017
  2. TEMESTA /00273201/ (TEMESTA - LORAZEPAM) (1 MG, 2 MG) (NOT SPECIFIED) [Suspect]
     Indication: DRUG USE FOR UNKNOWN INDICATION
     Dosage: (1 MG QD), (2 MG QD)
     Dates: start: 20071018
  3. SOLIAN (SOLIAN - AMISULPRIDE) (NOT SPECIFIED) [Suspect]
     Indication: SCHIZOPHRENIA
     Dosage: (200 MG QD), (600 MG QD), (800 MG QD)
     Dates: start: 20071017, end: 20071017
  4. SOLIAN (SOLIAN - AMISULPRIDE) (NOT SPECIFIED) [Suspect]
     Indication: SCHIZOPHRENIA
     Dosage: (200 MG QD), (600 MG QD), (800 MG QD)
     Dates: start: 20071018, end: 20071019
  5. SOLIAN (SOLIAN - AMISULPRIDE) (NOT SPECIFIED) [Suspect]
     Indication: SCHIZOPHRENIA
     Dosage: (200 MG QD), (600 MG QD), (800 MG QD)
     Dates: start: 20071020
  6. ZELDOX /01487002/ (ZELDOX - ZIPRASIDONE) (NOT SPECIFIED) [Suspect]
     Indication: SCHIZOPHRENIA
     Dosage: (80 MG QD), (120 MG QD), (160 MG QD)
     Dates: start: 20071019, end: 20071021
  7. ZELDOX /01487002/ (ZELDOX - ZIPRASIDONE) (NOT SPECIFIED) [Suspect]
     Indication: SCHIZOPHRENIA
     Dosage: (80 MG QD), (120 MG QD), (160 MG QD)
     Dates: start: 20071022, end: 20071022
  8. ZELDOX /01487002/ (ZELDOX - ZIPRASIDONE) (NOT SPECIFIED) [Suspect]
     Indication: SCHIZOPHRENIA
     Dosage: (80 MG QD), (120 MG QD), (160 MG QD)
     Dates: start: 20071023

REACTIONS (2)
  - ENURESIS [None]
  - STRESS URINARY INCONTINENCE [None]
